FAERS Safety Report 7965375-5 (Version None)
Quarter: 2011Q4

REPORT INFORMATION
  Report Type: 
  Country: None (occurrence: None)
  Receive Date: 20111208
  Receipt Date: 20111129
  Transmission Date: 20120403
  Serious: Yes (Other)
  Sender: FDA-Public Use
  Company Number: US-MYLANLABS-2011S1021211

PATIENT
  Age: 47 Year
  Sex: Male

DRUGS (8)
  1. ALPRAZOLAM [Suspect]
     Indication: PANIC ATTACK
     Dosage: 2MG BID
     Route: 048
     Dates: start: 20070101, end: 20111012
  2. TYLENOL PM EXTRA STRENGTH [Concomitant]
  3. ALPRAZOLAM [Suspect]
     Indication: INSOMNIA
     Dosage: 2MG BID
     Route: 048
     Dates: start: 20070101, end: 20111012
  4. NORCO [Concomitant]
     Indication: MUSCULOSKELETAL PAIN
     Dosage: 325MG/10MG
     Route: 048
     Dates: start: 20080101
  5. ALPRAZOLAM [Suspect]
     Indication: ANXIETY
     Dosage: 2MG BID
     Route: 048
     Dates: start: 20070101, end: 20111012
  6. IMODIUM [Concomitant]
  7. OMEPRAZOLE [Concomitant]
  8. ALPRAZOLAM [Suspect]
     Indication: MIGRAINE
     Dosage: 2MG BID
     Route: 048
     Dates: start: 20070101, end: 20111012

REACTIONS (9)
  - PANIC ATTACK [None]
  - DEPENDENCE [None]
  - ANXIETY [None]
  - DRUG WITHDRAWAL SYNDROME [None]
  - DRUG DEPENDENCE [None]
  - INAPPROPRIATE SCHEDULE OF DRUG ADMINISTRATION [None]
  - INSOMNIA [None]
  - PRODUCT QUALITY ISSUE [None]
  - DRUG INEFFECTIVE [None]
